FAERS Safety Report 9109855 (Version 1)
Quarter: 2013Q1

REPORT INFORMATION
  Report Type: Spontaneous
  Country: DE (occurrence: DE)
  Receive Date: 20130222
  Receipt Date: 20130222
  Transmission Date: 20140127
  Serious: Yes (Other)
  Sender: FDA-Public Use
  Company Number: DE-JNJFOC-20130207962

PATIENT
  Sex: 0

DRUGS (12)
  1. TOPIRAMATE [Suspect]
     Indication: EPILEPSY
     Dosage: THE MEAN DAILY DOSE WAS 220+/-125.1MG/DAY
     Route: 048
  2. LEVETIRACETAM [Concomitant]
     Indication: EPILEPSY
     Dosage: BASE LINE DOSE 47 DAILY DEFINED DOSE (DDD), FOLLOW UP DOSE 40 DDD
     Route: 065
  3. VALPROIC ACID [Concomitant]
     Indication: EPILEPSY
     Dosage: BASE LINE DOSE 20 DAILY DEFINED DOSE (DDD), FOLLOW UP DOSE 27 DDD
     Route: 065
  4. CLOBAZAM [Concomitant]
     Indication: EPILEPSY
     Dosage: BASE LINE DOSE 13 DAILY DEFINED DOSE (DDD), FOLLOW UP DOSE 13 DDD
     Route: 065
  5. CLONAZEPAM [Concomitant]
     Indication: EPILEPSY
     Dosage: BASE LINE DOSE 13 DAILY DEFINED DOSE (DDD), FOLLOW UP DOSE 7 DDD
     Route: 065
  6. LACOSAMIDE [Concomitant]
     Indication: EPILEPSY
     Dosage: BASE LINE DOSE 27 DAILY DEFINED DOSE (DDD), FOLLOW UP DOSE 20 DDD
     Route: 065
  7. LAMOTRIGINE [Concomitant]
     Indication: EPILEPSY
     Dosage: BASE LINE DOSE 27 DAILY DEFINED DOSE (DDD), FOLLOW UP DOSE 33 DDD
     Route: 065
  8. OXCARBAZEPINE [Concomitant]
     Indication: EPILEPSY
     Dosage: BASE LINE DOSE 33 DAILY DEFINED DOSE (DDD), FOLLOW UP DOSE 27 DDD
     Route: 065
  9. PHENOBARBITAL [Concomitant]
     Indication: EPILEPSY
     Dosage: BASE LINE DOSE 7 DAILY DEFINED DOSE (DDD), FOLLOW UP DOSE 13 DDD
     Route: 065
  10. PREGABALIN [Concomitant]
     Indication: EPILEPSY
     Dosage: BASE LINE DOSE 7 DAILY DEFINED DOSE (DDD),
     Route: 065
  11. RUFINAMIDE [Concomitant]
     Indication: EPILEPSY
     Dosage: BASE LINE DOSE 7 DAILY DEFINED DOSE (DDD), FOLLOW UP DOSE 7 DDD
     Route: 065
  12. ZONISAMIDE [Concomitant]
     Indication: EPILEPSY
     Dosage: BASE LINE DOSE 13 DAILY DEFINED DOSE (DDD), FOLLOW UP DOSE 0 DDD
     Route: 065

REACTIONS (2)
  - Cognitive disorder [Unknown]
  - Weight decreased [Unknown]
